FAERS Safety Report 7374329-1 (Version None)
Quarter: 2011Q1

REPORT INFORMATION
  Report Type: 
  Country: None (occurrence: None)
  Receive Date: 20110316
  Receipt Date: 20110301
  Transmission Date: 20110831
  Serious: Yes (Other)
  Sender: FDA-Public Use
  Company Number: AUR-APL-2011-00826

PATIENT
  Age: 76 Year
  Sex: Female

DRUGS (11)
  1. HYDROCORTISONE [Concomitant]
  2. DIGOXIN [Concomitant]
  3. ISOSORBIDE MONONITRATE [Concomitant]
  4. RAMIPRIL [Concomitant]
  5. ASPIRIN [Concomitant]
  6. DILTIAZEM HCL [Concomitant]
  7. PREDNISOLONE [Concomitant]
  8. OMEPRAZOLE [Concomitant]
  9. BISOPROLOL [Suspect]
     Dosage: 5MG-DAIILY
  10. SITAGLIPTIN [Concomitant]
  11. AMITRIPTYLINE [Concomitant]

REACTIONS (1)
  - EPISTAXIS [None]
